FAERS Safety Report 13298843 (Version 2)
Quarter: 2017Q1

REPORT INFORMATION
  Report Type: Spontaneous
  Country: US (occurrence: US)
  Receive Date: 20170306
  Receipt Date: 20170320
  Transmission Date: 20170428
  Serious: Yes (Death, Hospitalization, Other)
  Sender: FDA-Public Use
  Company Number: US-UNITED THERAPEUTICS-UNT-2017-002814

PATIENT
  Sex: Female

DRUGS (2)
  1. REMODULIN [Suspect]
     Active Substance: TREPROSTINIL
     Indication: PULMONARY ARTERIAL HYPERTENSION
     Dosage: 0.171 ?G/KG, CONTINUING
     Route: 041
     Dates: start: 20100610, end: 20170225
  2. REMODULIN [Suspect]
     Active Substance: TREPROSTINIL
     Dosage: 0.171 ?G/KG, CONTINUING
     Route: 041
     Dates: start: 20160205

REACTIONS (2)
  - Altered state of consciousness [Fatal]
  - Epistaxis [Unknown]

NARRATIVE: CASE EVENT DATE: 201702
